FAERS Safety Report 8505246-9 (Version None)
Quarter: 2012Q3

REPORT INFORMATION
  Report Type: 
  Country: None (occurrence: None)
  Receive Date: 20120712
  Receipt Date: 20120710
  Transmission Date: 20120928
  Serious: Yes (Other)
  Sender: FDA-Public Use
  Company Number: US-PFIZER INC-2012165926

PATIENT
  Sex: Female
  Weight: 49.4 kg

DRUGS (3)
  1. NORVASC [Suspect]
     Indication: HYPERTENSION
     Dosage: 20 MG, 2X/DAY
     Route: 048
  2. PLAVIX [Concomitant]
     Dosage: UNK
  3. ASPIRIN [Concomitant]
     Dosage: UNK

REACTIONS (6)
  - MYOCARDIAL INFARCTION [None]
  - CIRCULATORY COLLAPSE [None]
  - FALL [None]
  - LOWER LIMB FRACTURE [None]
  - HEART RATE INCREASED [None]
  - HYPERTENSION [None]
